FAERS Safety Report 21253370 (Version 1)
Quarter: 2022Q3

REPORT INFORMATION
  Report Type: Spontaneous
  Country: US (occurrence: None)
  Receive Date: 20220824
  Receipt Date: 20220824
  Transmission Date: 20221027
  Serious: Yes (Hospitalization)
  Sender: FDA-Public Use
  Company Number: None

PATIENT
  Age: 73 Year
  Sex: Male
  Weight: 93 kg

DRUGS (1)
  1. CILGAVIMAB\TIXAGEVIMAB [Suspect]
     Active Substance: CILGAVIMAB\TIXAGEVIMAB
     Dosage: FREQUENCY : ONCE;?
     Route: 042
     Dates: start: 20220801, end: 20220801

REACTIONS (2)
  - Atrial fibrillation [None]
  - Acute myocardial infarction [None]

NARRATIVE: CASE EVENT DATE: 20220810
